FAERS Safety Report 20990221 (Version 4)
Quarter: 2024Q4

REPORT INFORMATION
  Report Type: Report from Study
  Country: ES (occurrence: ES)
  Receive Date: 20220622
  Receipt Date: 20241031
  Transmission Date: 20250114
  Serious: Yes (Hospitalization)
  Sender: EMD SERONO INC
  Company Number: ES-Merck Healthcare KGaA-9330307

PATIENT
  Age: 49 Year
  Sex: Female
  Weight: 72 kg

DRUGS (4)
  1. CLADRIBINE [Suspect]
     Active Substance: CLADRIBINE
     Indication: Relapsing multiple sclerosis
     Dosage: YEAR ONE WEEK ONE THERAPY  (WEIGHT AT THE TIME OF THE DOSE 72 KG)
     Dates: start: 20210126
  2. CLADRIBINE [Suspect]
     Active Substance: CLADRIBINE
     Dosage: YEAR ONE WEEK TWO THERAPY (WEIGHT AT THE TIME OF THE DOSE 72 KG)
     Dates: start: 20210224
  3. CLADRIBINE [Suspect]
     Active Substance: CLADRIBINE
     Dosage: YEAR TWO WEEK ONE THERAPY (WEIGHT AT THE TIME OF THE DOSE 72 KG)
     Dates: start: 20220214, end: 20220218
  4. CLADRIBINE [Suspect]
     Active Substance: CLADRIBINE
     Dosage: YEAR TWO WEEK TWO THERAPY  (WEIGHT AT THE TIME OF THE DOSE 72 KG)
     Dates: start: 20220314

REACTIONS (2)
  - Escherichia pyelonephritis [Recovered/Resolved]
  - Lymphopenia [Recovered/Resolved]

NARRATIVE: CASE EVENT DATE: 20220601
